FAERS Safety Report 16053798 (Version 1)
Quarter: 2019Q1

REPORT INFORMATION
  Report Type: Spontaneous
  Country: US (occurrence: US)
  Receive Date: 20190308
  Receipt Date: 20190308
  Transmission Date: 20190418
  Serious: Yes (Hospitalization)
  Sender: FDA-Public Use
  Company Number: US-NOVOPROD-649976

PATIENT
  Age: 60 Year
  Sex: Female

DRUGS (2)
  1. OZEMPIC [Suspect]
     Active Substance: SEMAGLUTIDE
     Dosage: UNK
     Route: 058
     Dates: start: 201902, end: 20190228
  2. OZEMPIC [Suspect]
     Active Substance: SEMAGLUTIDE
     Indication: DIABETES MELLITUS
     Dosage: UNK
     Route: 058
     Dates: start: 201812, end: 201901

REACTIONS (10)
  - Vision blurred [Not Recovered/Not Resolved]
  - Rash pruritic [Not Recovered/Not Resolved]
  - Constipation [Not Recovered/Not Resolved]
  - Headache [Not Recovered/Not Resolved]
  - Nausea [Not Recovered/Not Resolved]
  - Dizziness [Not Recovered/Not Resolved]
  - Influenza [Recovered/Resolved]
  - Abdominal discomfort [Not Recovered/Not Resolved]
  - Pneumonia [Unknown]
  - Vomiting [Not Recovered/Not Resolved]

NARRATIVE: CASE EVENT DATE: 201812
